FAERS Safety Report 7831571-0 (Version None)
Quarter: 2011Q4

REPORT INFORMATION
  Report Type: 
  Country: None (occurrence: None)
  Receive Date: 20111021
  Receipt Date: 20111021
  Transmission Date: 20120403
  Serious: Yes (Death, Disabling)
  Sender: FDA-Public Use
  Company Number: AU-B.I. PHARMACEUTICALS,INC./RIDGEFIELD-2011-AU-01438AU

PATIENT
  Sex: Female
  Weight: 60 kg

DRUGS (3)
  1. BICOR [Suspect]
     Dosage: 1.25 MG
     Dates: end: 20110831
  2. PRADAXA [Suspect]
     Indication: ATRIAL FIBRILLATION
     Dosage: 220 MG
     Dates: start: 20110807, end: 20110831
  3. LIPITOR [Concomitant]
     Dosage: 20 MG
     Dates: end: 20110831

REACTIONS (1)
  - CARDIAC ARREST [None]
